FAERS Safety Report 6286749-7 (Version None)
Quarter: 2009Q3

REPORT INFORMATION
  Report Type: 
  Country: None (occurrence: None)
  Receive Date: 20090724
  Receipt Date: 20090710
  Transmission Date: 20100115
  Serious: Yes (Hospitalization)
  Sender: FDA-Public Use
  Company Number: 8046636

PATIENT
  Age: 27 Year
  Sex: Female
  Weight: 61 kg

DRUGS (7)
  1. KEPPRA [Suspect]
     Indication: EPILEPSY
     Dosage: 1000 MG /D PO
     Route: 048
     Dates: start: 20080911
  2. LAMICTAL [Concomitant]
  3. URBANYL [Concomitant]
  4. LYRICA [Concomitant]
  5. HEPT-A-MYL [Concomitant]
  6. LEVOTHYROX [Concomitant]
  7. SEROPLEX [Concomitant]

REACTIONS (10)
  - ASTHENIA [None]
  - CONDITION AGGRAVATED [None]
  - CONVULSION [None]
  - DRUG EXPOSURE DURING PREGNANCY [None]
  - ELECTROENCEPHALOGRAM ABNORMAL [None]
  - EPILEPSY [None]
  - HYPOTHYROIDISM [None]
  - MALNUTRITION [None]
  - PREGNANCY [None]
  - SOMNOLENCE [None]
